FAERS Safety Report 5018082-5 (Version None)
Quarter: 2006Q2

REPORT INFORMATION
  Report Type: 
  Country: None (occurrence: None)
  Receive Date: 20060525
  Receipt Date: 20060505
  Transmission Date: 20061013
  Serious: Yes (Hospitalization)
  Sender: FDA-Public Use
  Company Number: US200605001216

PATIENT
  Sex: Female

DRUGS (2)
  1. FORTEO [Suspect]
     Indication: OSTEOPOROSIS
     Dates: start: 20040101
  2. FORTEO PEN (250MCG/ML) (FORTEO PEN (250MCG/ML (3ML)) PEN, DISPOSABLEFO [Concomitant]

REACTIONS (1)
  - DEHYDRATION [None]
